FAERS Safety Report 9571997 (Version 2)
Quarter: 2013Q4

REPORT INFORMATION
  Report Type: Spontaneous
  Country: US (occurrence: US)
  Receive Date: 20131001
  Receipt Date: 20131001
  Transmission Date: 20140711
  Serious: No
  Sender: FDA-Public Use
  Company Number: US-PURDUE-USA-2011-0078849

PATIENT
  Age: 61 Year
  Sex: Male
  Weight: 131.52 kg

DRUGS (3)
  1. BUTRANS [Suspect]
     Indication: PRODUCT USED FOR UNKNOWN INDICATION
     Dosage: 10 MG, Q1H
     Route: 062
  2. BUTRANS [Suspect]
     Dosage: 5 MG, Q1H
     Route: 062
  3. BUTRANS [Suspect]
     Dosage: 20 MCG, Q1H
     Route: 062
     Dates: start: 20110713, end: 201108

REACTIONS (4)
  - Drug ineffective [Unknown]
  - Drug intolerance [Unknown]
  - Extra dose administered [Unknown]
  - Application site irritation [Recovered/Resolved]
